FAERS Safety Report 23580401 (Version 1)
Quarter: 2024Q1

REPORT INFORMATION
  Report Type: Spontaneous
  Country: GB (occurrence: GB)
  Receive Date: 20240229
  Receipt Date: 20240229
  Transmission Date: 20240409
  Serious: Yes (Death, Hospitalization, Other)
  Sender: FDA-Public Use
  Company Number: None

PATIENT
  Age: 59 Year
  Sex: Male
  Weight: 62 kg

DRUGS (130)
  1. ACETAMINOPHEN [Suspect]
     Active Substance: ACETAMINOPHEN
     Indication: Pain
     Dosage: 500 MG
     Route: 048
     Dates: start: 20151027
  2. ACETAMINOPHEN [Suspect]
     Active Substance: ACETAMINOPHEN
     Dosage: 500 MG
     Route: 050
     Dates: start: 20151027
  3. ACETAMINOPHEN [Suspect]
     Active Substance: ACETAMINOPHEN
     Indication: Pain
     Dosage: 15 MILLIGRAM, QD
     Route: 065
     Dates: start: 201510
  4. LORAZEPAM [Suspect]
     Active Substance: LORAZEPAM
     Indication: Schizophrenia
     Dosage: 1 MG
     Route: 048
  5. CHLORPROMAZINE [Suspect]
     Active Substance: CHLORPROMAZINE
     Indication: Schizophrenia
     Dosage: 75 MG
     Route: 048
  6. CLOZARIL [Suspect]
     Active Substance: CLOZAPINE
     Indication: Schizophrenia
     Dosage: 1 DOSAGE FORM, EACH MORNING
     Route: 048
     Dates: start: 2011
  7. CLOZARIL [Suspect]
     Active Substance: CLOZAPINE
     Dosage: 800 MG, QD
     Route: 065
  8. CLOZARIL [Suspect]
     Active Substance: CLOZAPINE
     Dosage: 245 MG, QD (AM)
     Route: 065
     Dates: start: 20191223, end: 20191223
  9. CLOZARIL [Suspect]
     Active Substance: CLOZAPINE
     Dosage: 200 MILLIGRAM, TWO TIMES A DAY
     Route: 065
  10. CLOZARIL [Suspect]
     Active Substance: CLOZAPINE
     Dosage: 6000 MILLIGRAM
     Route: 065
     Dates: start: 20200521, end: 2020
  11. CLOZARIL [Suspect]
     Active Substance: CLOZAPINE
     Dosage: 6000 MG
     Route: 065
     Dates: start: 20201223, end: 20201223
  12. CLOZARIL [Suspect]
     Active Substance: CLOZAPINE
     Dosage: 200 MILLIGRAM, ONCE A DAY, 200 MILLIGRAM, BID OFF LABEL USE
     Route: 065
  13. CLOZARIL [Suspect]
     Active Substance: CLOZAPINE
     Dosage: 245 MG, QD
     Route: 065
     Dates: start: 20200521, end: 2020
  14. CLOZARIL [Suspect]
     Active Substance: CLOZAPINE
     Dosage: UNK, UNKNOWN
     Route: 065
     Dates: start: 20191223, end: 20191223
  15. CLOZARIL [Suspect]
     Active Substance: CLOZAPINE
     Dosage: 6000 MG
     Route: 065
     Dates: start: 20201207
  16. CLOZARIL [Suspect]
     Active Substance: CLOZAPINE
     Dosage: 400 MG, QD
     Route: 065
     Dates: start: 20201207
  17. CLOZARIL [Suspect]
     Active Substance: CLOZAPINE
     Dosage: 50 MG, QD, MIDDAY
     Route: 065
     Dates: start: 20191209, end: 20191223
  18. CLOZARIL [Suspect]
     Active Substance: CLOZAPINE
     Dosage: UNK UNK, UNKNOWN
     Route: 065
     Dates: start: 20100823
  19. CLOZARIL [Suspect]
     Active Substance: CLOZAPINE
     Dosage: 6000 MILLIGRAM
     Route: 065
     Dates: start: 20100823, end: 20100823
  20. CLOZARIL [Suspect]
     Active Substance: CLOZAPINE
     Dosage: 50 MG, QD
     Route: 048
     Dates: start: 20190809, end: 20190823
  21. CLOZARIL [Suspect]
     Active Substance: CLOZAPINE
     Dosage: 300 MG, QD
     Route: 048
  22. CLOZARIL [Suspect]
     Active Substance: CLOZAPINE
     Dosage: OFF LABEL USE
     Route: 048
     Dates: start: 20200521, end: 2021
  23. CLOZARIL [Suspect]
     Active Substance: CLOZAPINE
     Dosage: 275 MG, QD
     Route: 048
     Dates: start: 20200521, end: 2020
  24. CLOZARIL [Suspect]
     Active Substance: CLOZAPINE
     Dosage: 200 MG, 2X/DAY
     Route: 048
     Dates: start: 20191209, end: 20191223
  25. CLOZARIL [Suspect]
     Active Substance: CLOZAPINE
     Dosage: 245 MG
     Route: 048
     Dates: start: 20191209, end: 20191223
  26. CLOZARIL [Suspect]
     Active Substance: CLOZAPINE
     Dosage: 100 MG, QD
     Route: 065
  27. CLOZARIL [Suspect]
     Active Substance: CLOZAPINE
     Dosage: 245 MILLIGRAM, 1 ONCE A DAY (AM)
     Route: 048
     Dates: start: 2011
  28. CLOZARIL [Suspect]
     Active Substance: CLOZAPINE
     Dosage: UNK
     Route: 048
     Dates: start: 20201207
  29. CLOZARIL [Suspect]
     Active Substance: CLOZAPINE
     Dosage: 300 MG, 1X/DAY (PM)
     Route: 048
     Dates: start: 20100823
  30. TRASTUZUMAB [Suspect]
     Active Substance: TRASTUZUMAB
     Indication: Breast cancer metastatic
     Dosage: 840 MILLIGRAM, Q3WK
     Route: 065
  31. TRASTUZUMAB [Suspect]
     Active Substance: TRASTUZUMAB
     Dosage: 609 MG, 2/W;
     Route: 065
     Dates: start: 20150930
  32. TRASTUZUMAB [Suspect]
     Active Substance: TRASTUZUMAB
     Dosage: 420 MG, Q3W (CUMULATIVE DOSE: 820.83 MG)
     Route: 065
  33. TRASTUZUMAB [Suspect]
     Active Substance: TRASTUZUMAB
     Dosage: 609 MG, Q3W (CUMULATIVE DOSE: 929.208333MG)
     Route: 065
     Dates: start: 20150930
  34. TRASTUZUMAB [Suspect]
     Active Substance: TRASTUZUMAB
     Dosage: 1827 MG, QW (CUMULATIVE DOSE: 8362.875MG)
     Route: 065
     Dates: start: 20150930
  35. TRASTUZUMAB [Suspect]
     Active Substance: TRASTUZUMAB
     Dosage: 840 MG, Q3W (CUMULATIVE DOSE: 2481.6667 MG
     Route: 065
  36. TRASTUZUMAB [Suspect]
     Active Substance: TRASTUZUMAB
     Dosage: 1218 MG, WEEKLY
     Route: 065
     Dates: start: 20150930
  37. TRASTUZUMAB [Suspect]
     Active Substance: TRASTUZUMAB
     Dosage: 420 MG, 3 WEEK
     Route: 065
  38. TRASTUZUMAB [Suspect]
     Active Substance: TRASTUZUMAB
     Dosage: 1 MG
     Route: 048
  39. TRASTUZUMAB [Suspect]
     Active Substance: TRASTUZUMAB
     Dosage: 609 MILLIGRAM, Q3W (1799.20 MG)/30-SEP-2015
     Route: 042
  40. TRASTUZUMAB [Suspect]
     Active Substance: TRASTUZUMAB
     Dosage: 840 MG, Q3W (CUMULATIVE DOSE: 2481.6667 MG
     Route: 065
  41. TRASTUZUMAB [Suspect]
     Active Substance: TRASTUZUMAB
     Dosage: 1218 MG, WEEKLY
     Route: 065
     Dates: start: 20150930
  42. PACLITAXEL [Suspect]
     Active Substance: PACLITAXEL
     Indication: Breast cancer metastatic
     Dosage: 150 MG, QW
     Route: 065
     Dates: start: 20151223, end: 20151223
  43. PACLITAXEL [Suspect]
     Active Substance: PACLITAXEL
     Dosage: 120 MG, WEEKLY
     Route: 065
     Dates: start: 20151111
  44. PACLITAXEL [Suspect]
     Active Substance: PACLITAXEL
     Dosage: 120 MG, WEEKLY
     Route: 065
     Dates: start: 20151223, end: 20151223
  45. PACLITAXEL [Suspect]
     Active Substance: PACLITAXEL
     Dosage: 150 MG, WEEKLY
     Route: 065
     Dates: start: 20151111, end: 20151222
  46. PACLITAXEL [Suspect]
     Active Substance: PACLITAXEL
     Dosage: 120 MG, WEEKLY
     Route: 042
     Dates: start: 20151111, end: 20151222
  47. OLANZAPINE [Suspect]
     Active Substance: OLANZAPINE
     Indication: Schizophrenia
     Dosage: 2.5 MG
     Route: 048
     Dates: start: 20080823
  48. OLANZAPINE [Suspect]
     Active Substance: OLANZAPINE
     Dosage: 10 MG
  49. OLANZAPINE [Suspect]
     Active Substance: OLANZAPINE
     Dosage: 15 MG
     Dates: start: 20040217
  50. OLANZAPINE [Suspect]
     Active Substance: OLANZAPINE
     Dosage: 15 MG
     Dates: start: 20060704
  51. OLANZAPINE [Suspect]
     Active Substance: OLANZAPINE
     Dosage: 120 MG
     Route: 065
  52. OLANZAPINE [Suspect]
     Active Substance: OLANZAPINE
     Dosage: 1 MG
     Route: 048
  53. RANITIDINE [Concomitant]
     Active Substance: RANITIDINE
     Indication: Gastrooesophageal reflux disease
     Dosage: 150 MG, QW
  54. RANITIDINE [Concomitant]
     Active Substance: RANITIDINE
     Dosage: 75 MG, WEEKLY
     Dates: start: 20151111
  55. RANITIDINE [Concomitant]
     Active Substance: RANITIDINE
     Dosage: 50 MG, WEEKLY
     Route: 058
     Dates: start: 20151111
  56. MORPHINE [Concomitant]
     Active Substance: MORPHINE
     Indication: Pain
     Dosage: 30 MG
     Route: 048
  57. LITHIUM [Suspect]
     Active Substance: LITHIUM
     Indication: Schizophrenia
     Dosage: 1 MG
     Route: 048
  58. LITHIUM [Suspect]
     Active Substance: LITHIUM
     Dosage: 2 GRAM
     Route: 065
  59. LITHIUM [Suspect]
     Active Substance: LITHIUM
     Dosage: 1 G
     Route: 065
  60. LITHIUM [Suspect]
     Active Substance: LITHIUM
     Dosage: 6 MG, QD
     Route: 065
  61. RISPERIDONE [Suspect]
     Active Substance: RISPERIDONE
     Indication: Schizophrenia
     Dosage: 3 MILLIGRAM, QD
     Route: 048
  62. RISPERIDONE [Suspect]
     Active Substance: RISPERIDONE
     Dosage: 2 MILLIGRAM, QD
     Route: 065
  63. RISPERIDONE [Suspect]
     Active Substance: RISPERIDONE
     Dosage: 4 MILLIGRAM, QD
     Route: 065
  64. RISPERIDONE [Suspect]
     Active Substance: RISPERIDONE
     Dosage: 6 MG, BID
     Route: 065
  65. DOCETAXEL [Suspect]
     Active Substance: DOCETAXEL\DOCETAXEL ANHYDROUS
     Indication: Product used for unknown indication
     Dosage: 220 MG, Q3W
     Route: 065
     Dates: start: 20151222
  66. DOCETAXEL [Suspect]
     Active Substance: DOCETAXEL\DOCETAXEL ANHYDROUS
     Dosage: 110 MG, Q3W (110 MG, Q3W (CUMULATIVE DOSE: 324.98))
     Route: 065
     Dates: start: 20150930, end: 20151021
  67. CHOLECALCIFEROL [Concomitant]
     Active Substance: CHOLECALCIFEROL
     Indication: Product used for unknown indication
     Dosage: 2 DOSAGE FORM, QD
     Route: 048
  68. ZUCLOPENTHIXOL HYDROCHLORIDE [Suspect]
     Active Substance: ZUCLOPENTHIXOL HYDROCHLORIDE
     Indication: Schizophrenia
     Dosage: 400 MG, BIW
     Route: 065
     Dates: start: 20040601, end: 20041018
  69. ZUCLOPENTHIXOL HYDROCHLORIDE [Suspect]
     Active Substance: ZUCLOPENTHIXOL HYDROCHLORIDE
     Dosage: 400 MG, QW
     Route: 065
     Dates: start: 20040217, end: 20040601
  70. ZUCLOPENTHIXOL HYDROCHLORIDE [Suspect]
     Active Substance: ZUCLOPENTHIXOL HYDROCHLORIDE
     Dosage: 400 MG
     Route: 065
     Dates: start: 20040601, end: 20041018
  71. ZUCLOPENTHIXOL HYDROCHLORIDE [Suspect]
     Active Substance: ZUCLOPENTHIXOL HYDROCHLORIDE
     Dosage: 800 MG, QW (400 MG, BIW)
     Route: 065
     Dates: start: 20041018, end: 20041018
  72. ZUCLOPENTHIXOL HYDROCHLORIDE [Suspect]
     Active Substance: ZUCLOPENTHIXOL HYDROCHLORIDE
     Dosage: 800 MG, QW
     Route: 065
     Dates: start: 20030204, end: 20040217
  73. ZUCLOPENTHIXOL HYDROCHLORIDE [Suspect]
     Active Substance: ZUCLOPENTHIXOL HYDROCHLORIDE
     Dosage: 400 MG, BIW
     Route: 065
     Dates: start: 20041018, end: 20041018
  74. ZUCLOPENTHIXOL HYDROCHLORIDE [Suspect]
     Active Substance: ZUCLOPENTHIXOL HYDROCHLORIDE
     Dosage: 300 MG, QW
     Route: 065
     Dates: start: 20091009
  75. ZUCLOPENTHIXOL HYDROCHLORIDE [Suspect]
     Active Substance: ZUCLOPENTHIXOL HYDROCHLORIDE
     Dosage: 300 MG, QW
     Route: 065
     Dates: start: 20091018
  76. ZUCLOPENTHIXOL HYDROCHLORIDE [Suspect]
     Active Substance: ZUCLOPENTHIXOL HYDROCHLORIDE
     Dosage: 800 MG, QW
     Route: 065
     Dates: start: 20040601, end: 20041018
  77. ZUCLOPENTHIXOL HYDROCHLORIDE [Suspect]
     Active Substance: ZUCLOPENTHIXOL HYDROCHLORIDE
     Dosage: 800 MG, QW (800 MG, QW, (04 FEB 2003)
     Route: 065
     Dates: start: 20040217
  78. ZUCLOPENTHIXOL HYDROCHLORIDE [Suspect]
     Active Substance: ZUCLOPENTHIXOL HYDROCHLORIDE
     Dosage: 400 MG
     Route: 065
     Dates: start: 20041018, end: 20041018
  79. ZUCLOPENTHIXOL HYDROCHLORIDE [Suspect]
     Active Substance: ZUCLOPENTHIXOL HYDROCHLORIDE
     Dosage: 400 MG, BIW
     Route: 065
     Dates: start: 20030204, end: 20040217
  80. LEVOFLOXACIN [Suspect]
     Active Substance: LEVOFLOXACIN
     Indication: Febrile neutropenia
     Dosage: 500 MG, DAILY
     Route: 040
     Dates: start: 20151125
  81. MIRTAZAPINE [Concomitant]
     Active Substance: MIRTAZAPINE
     Indication: Product used for unknown indication
     Dosage: 15 MG, DAILY
     Route: 048
     Dates: start: 201510
  82. CHLORPHENIRAMINE MALEATE [Concomitant]
     Active Substance: CHLORPHENIRAMINE MALEATE
     Indication: Product used for unknown indication
     Dosage: 10 MILLIGRAM, WEEKLY
     Route: 058
     Dates: start: 20151111
  83. ZUCLOPENTHIXOL HYDROCHLORIDE [Suspect]
     Active Substance: ZUCLOPENTHIXOL HYDROCHLORIDE
     Indication: Product used for unknown indication
     Dosage: 800 MILLIGRAM, QW (400 MG, 2/W, BIWEEKLY)
     Route: 065
     Dates: start: 20040601, end: 20041018
  84. ZUCLOPENTHIXOL HYDROCHLORIDE [Suspect]
     Active Substance: ZUCLOPENTHIXOL HYDROCHLORIDE
     Dosage: 300 MG, QW
     Route: 065
     Dates: start: 20091018
  85. ZUCLOPENTHIXOL HYDROCHLORIDE [Suspect]
     Active Substance: ZUCLOPENTHIXOL HYDROCHLORIDE
     Dosage: 300 MILLIGRAM, WEEKLY (QW)
     Route: 065
     Dates: start: 20091018
  86. ZUCLOPENTHIXOL HYDROCHLORIDE [Suspect]
     Active Substance: ZUCLOPENTHIXOL HYDROCHLORIDE
     Dosage: 400 MILLIGRAM, BIWEEKLY (QW2)
     Route: 065
     Dates: start: 20091018
  87. ZUCLOPENTHIXOL HYDROCHLORIDE [Suspect]
     Active Substance: ZUCLOPENTHIXOL HYDROCHLORIDE
     Dosage: 800 MILLIGRAM, QW
     Route: 065
     Dates: start: 20030204, end: 20040217
  88. ZUCLOPENTHIXOL HYDROCHLORIDE [Suspect]
     Active Substance: ZUCLOPENTHIXOL HYDROCHLORIDE
     Dosage: 300 MG, DAILY (QD)
     Route: 065
     Dates: start: 20091009
  89. ZUCLOPENTHIXOL HYDROCHLORIDE [Suspect]
     Active Substance: ZUCLOPENTHIXOL HYDROCHLORIDE
     Dosage: 400 MILLIGRAM, BIWEEKLY
     Route: 065
     Dates: start: 20041018, end: 20041018
  90. ZUCLOPENTHIXOL HYDROCHLORIDE [Suspect]
     Active Substance: ZUCLOPENTHIXOL HYDROCHLORIDE
     Dosage: 400 MILLIGRAM, CYCLICAL, (400 MG, BIWEEKLY)  )
     Route: 065
     Dates: start: 20040217, end: 20040601
  91. ZUCLOPENTHIXOL HYDROCHLORIDE [Suspect]
     Active Substance: ZUCLOPENTHIXOL HYDROCHLORIDE
     Dosage: 800 MILLIGRAM, QW (400 MG, 2/W, QW2)
     Route: 065
     Dates: start: 20030204, end: 20040217
  92. ZUCLOPENTHIXOL HYDROCHLORIDE [Suspect]
     Active Substance: ZUCLOPENTHIXOL HYDROCHLORIDE
     Dosage: 400 MILLIGRAM, QW
     Route: 065
     Dates: start: 20040217, end: 20040601
  93. ZUCLOPENTHIXOL HYDROCHLORIDE [Suspect]
     Active Substance: ZUCLOPENTHIXOL HYDROCHLORIDE
     Dosage: 400 MILLIGRAM QW2, (CYCLIC)
     Route: 065
     Dates: start: 20040204, end: 20040217
  94. XGEVA [Suspect]
     Active Substance: DENOSUMAB
     Indication: Metastases to bone
     Dosage: 120 MG, QD
     Route: 058
     Dates: start: 20150930
  95. XGEVA [Suspect]
     Active Substance: DENOSUMAB
     Indication: Gastrooesophageal reflux disease
  96. ORAMORPH SR SUSTAINED RELEASE [Concomitant]
     Active Substance: MORPHINE SULFATE
     Indication: Pain
     Dosage: 10 MILLIGRAM, PRN/SEP-2015
     Route: 065
     Dates: start: 201509
  97. ORAMORPH SR SUSTAINED RELEASE [Concomitant]
     Active Substance: MORPHINE SULFATE
     Dosage: 15 MG, QD
     Route: 048
     Dates: start: 201510
  98. ORAMORPH SR SUSTAINED RELEASE [Concomitant]
     Active Substance: MORPHINE SULFATE
     Dosage: 60 MG, QD
     Route: 065
     Dates: start: 201509
  99. GENTAMICIN [Concomitant]
     Active Substance: GENTAMICIN
     Indication: Febrile neutropenia
     Route: 040
     Dates: start: 20151121, end: 201511
  100. LEVOFLOXACIN [Suspect]
     Active Substance: LEVOFLOXACIN
     Indication: Febrile neutropenia
     Dosage: 500 MG, QD
     Route: 048
     Dates: start: 20151125
  101. PREGABALIN [Concomitant]
     Active Substance: PREGABALIN
     Indication: Product used for unknown indication
     Dosage: 150 MILLIGRAM, BID
     Dates: start: 201509
  102. PREGABALIN [Concomitant]
     Active Substance: PREGABALIN
     Dosage: 75 MG, EVERY 0.5 DAY
     Route: 048
     Dates: start: 201509
  103. AMOXICILLIN\CLAVULANATE POTASSIUM [Concomitant]
     Active Substance: AMOXICILLIN\CLAVULANATE POTASSIUM
     Indication: Febrile neutropenia
     Dosage: 625 MG, QID
     Dates: start: 20151122, end: 20151125
  104. AMOXICILLIN\CLAVULANATE POTASSIUM [Concomitant]
     Active Substance: AMOXICILLIN\CLAVULANATE POTASSIUM
     Dosage: 625 MG, QID
     Dates: start: 20151122, end: 20151122
  105. AMOXICILLIN\CLAVULANATE POTASSIUM [Concomitant]
     Active Substance: AMOXICILLIN\CLAVULANATE POTASSIUM
     Dosage: 120 MG, OTHER (EVERY 9 WEEKS)
     Dates: start: 20151111
  106. AMOXICILLIN\CLAVULANATE POTASSIUM [Concomitant]
     Active Substance: AMOXICILLIN\CLAVULANATE POTASSIUM
     Dosage: 625 G
     Dates: start: 20151122, end: 20151125
  107. PERTUZUMAB [Suspect]
     Active Substance: PERTUZUMAB
     Indication: Breast cancer metastatic
     Dosage: 2 IU, QW (2 U, WEEKLY (1/W))
     Route: 040
  108. PERTUZUMAB [Suspect]
     Active Substance: PERTUZUMAB
     Dosage: 420 MG, Q3W (20 MG, Q3W (CUMULATIVE DOSE: 820.83 MG))
     Route: 065
  109. PERTUZUMAB [Suspect]
     Active Substance: PERTUZUMAB
     Dosage: 840 MG, Q3W (840 MG, Q3W (CUMULATIVE DOSE: 2481.6667 MG))
     Route: 065
     Dates: start: 20150930
  110. HALOPERIDOL [Suspect]
     Active Substance: HALOPERIDOL
     Indication: Schizophrenia
     Dosage: 20 MG, Q12H
     Route: 048
  111. HALOPERIDOL [Suspect]
     Active Substance: HALOPERIDOL
     Dosage: 5 MG, QD
     Route: 065
  112. HALOPERIDOL [Suspect]
     Active Substance: HALOPERIDOL
     Dosage: 20 MG, QD
     Route: 065
  113. HALOPERIDOL [Suspect]
     Active Substance: HALOPERIDOL
     Dosage: 10 MG, QD
     Route: 065
  114. DULOXETINE [Concomitant]
     Active Substance: DULOXETINE
     Indication: Product used for unknown indication
     Dosage: 110 MG, TIW
     Route: 040
     Dates: start: 20150930, end: 20151021
  115. TAZOBACTAM SODIUM [Concomitant]
     Active Substance: TAZOBACTAM SODIUM
     Indication: Febrile neutropenia
     Dates: start: 20151121
  116. RISPERDAL [Suspect]
     Active Substance: RISPERIDONE
     Indication: Schizophrenia
     Dosage: 1 MG, QD
     Route: 065
  117. RISPERDAL [Suspect]
     Active Substance: RISPERIDONE
     Dosage: 6 MG, QD
     Route: 065
  118. RISPERDAL [Suspect]
     Active Substance: RISPERIDONE
     Dosage: 1 G, QD
     Route: 065
  119. CALCIUM\CHOLECALCIFEROL [Concomitant]
     Active Substance: CALCIUM\CHOLECALCIFEROL
     Indication: Product used for unknown indication
     Dosage: 2 DOSAGE FORM, QD (DOSE FORM:245)
     Dates: start: 20090118
  120. CALCIUM\CHOLECALCIFEROL [Concomitant]
     Active Substance: CALCIUM\CHOLECALCIFEROL
     Dosage: 2 DOSAGE FORM
     Route: 048
     Dates: start: 20091018
  121. PIPERACILLIN SODIUM\TAZOBACTAM SODIUM [Concomitant]
     Active Substance: PIPERACILLIN SODIUM\TAZOBACTAM SODIUM
     Indication: Febrile neutropenia
     Dates: start: 20151121, end: 201511
  122. ARIPIPRAZOLE [Suspect]
     Active Substance: ARIPIPRAZOLE
     Indication: Schizophrenia
     Dosage: 15 MILLIGRAM
     Route: 048
     Dates: start: 20060704
  123. ARIPIPRAZOLE [Suspect]
     Active Substance: ARIPIPRAZOLE
     Dosage: 75 MILLIGRAM
     Route: 065
  124. ARIPIPRAZOLE [Suspect]
     Active Substance: ARIPIPRAZOLE
     Dosage: 2 MILLIGRAM, BID
     Route: 065
  125. ARIPIPRAZOLE [Suspect]
     Active Substance: ARIPIPRAZOLE
     Dosage: 2.5 MILLIGRAM
     Route: 065
     Dates: start: 20080823
  126. ARIPIPRAZOLE [Suspect]
     Active Substance: ARIPIPRAZOLE
     Dosage: 1 GRAM, QD
     Route: 065
  127. ARIPIPRAZOLE [Suspect]
     Active Substance: ARIPIPRAZOLE
     Dosage: 3 MILLIGRAM, BID
     Route: 065
  128. ARIPIPRAZOLE [Suspect]
     Active Substance: ARIPIPRAZOLE
     Dosage: 15 MILLIGRAM
     Route: 065
     Dates: start: 20040217
  129. ARIPIPRAZOLE [Suspect]
     Active Substance: ARIPIPRAZOLE
     Dosage: 5 MILLIGRAM, BID
     Route: 065
  130. ARIPIPRAZOLE [Suspect]
     Active Substance: ARIPIPRAZOLE
     Dosage: 5 MG, TABLET
     Route: 048

REACTIONS (28)
  - Seizure [Fatal]
  - Fatigue [Fatal]
  - Neuropathy peripheral [Fatal]
  - COVID-19 [Fatal]
  - Cellulitis [Fatal]
  - Neutrophil count increased [Fatal]
  - Mucosal inflammation [Fatal]
  - Nausea [Fatal]
  - Rhinalgia [Fatal]
  - Thrombocytopenia [Fatal]
  - SARS-CoV-2 test positive [Fatal]
  - Lymphocyte count abnormal [Fatal]
  - Diarrhoea [Fatal]
  - Schizophrenia [Fatal]
  - Neutropenia [Fatal]
  - Extrapyramidal disorder [Fatal]
  - Platelet count decreased [Fatal]
  - Lymphocyte count decreased [Fatal]
  - Leukocytosis [Fatal]
  - Delusion of grandeur [Fatal]
  - Hallucination, auditory [Fatal]
  - Neoplasm progression [Fatal]
  - Neutrophil count decreased [Fatal]
  - Psychotic disorder [Fatal]
  - Dyspepsia [Fatal]
  - Affective disorder [Fatal]
  - Alopecia [Fatal]
  - Leukopenia [Fatal]

NARRATIVE: CASE EVENT DATE: 20151101
